FAERS Safety Report 5265962-1 (Version None)
Quarter: 2007Q1

REPORT INFORMATION
  Report Type: 
  Country: None (occurrence: None)
  Receive Date: 20070315
  Receipt Date: 20070307
  Transmission Date: 20070707
  Serious: Yes (Other)
  Sender: FDA-Public Use
  Company Number: PHBS2007BE02873

PATIENT
  Sex: Female

DRUGS (5)
  1. ZOMETA [Suspect]
     Indication: BREAST CANCER METASTATIC
     Dosage: UNK, UNK
     Route: 065
     Dates: start: 20040801, end: 20060101
  2. TAXOTERE [Concomitant]
  3. CORTICOSTEROIDS [Concomitant]
  4. TAXOL [Concomitant]
  5. HERCEPTIN [Concomitant]

REACTIONS (3)
  - OSTEONECROSIS [None]
  - PAIN [None]
  - PURULENT DISCHARGE [None]
